FAERS Safety Report 6684857-X (Version None)
Quarter: 2010Q2

REPORT INFORMATION
  Report Type: 
  Country: None (occurrence: None)
  Receive Date: 20100416
  Receipt Date: 20100409
  Transmission Date: 20101027
  Serious: Yes (Hospitalization)
  Sender: FDA-Public Use
  Company Number: US-MERCK-1004USA01411

PATIENT
  Sex: Female

DRUGS (4)
  1. FOSAMAX [Suspect]
     Indication: OSTEOPOROSIS
     Route: 048
     Dates: start: 20000101
  2. LESCOL [Concomitant]
     Route: 065
  3. ZOCOR [Suspect]
     Indication: BLOOD CHOLESTEROL INCREASED
     Route: 048
  4. LIPITOR [Suspect]
     Indication: BLOOD CHOLESTEROL INCREASED
     Route: 065

REACTIONS (5)
  - FALL [None]
  - MYALGIA [None]
  - PELVIC FRACTURE [None]
  - ROAD TRAFFIC ACCIDENT [None]
  - WRIST FRACTURE [None]
